FAERS Safety Report 12717890 (Version 1)
Quarter: 2016Q3

REPORT INFORMATION
  Report Type: Report from Study
  Country: CA (occurrence: CA)
  Receive Date: 20160906
  Receipt Date: 20160906
  Transmission Date: 20161109
  Serious: Yes (Other)
  Sender: FDA-Public Use
  Company Number: PHHY2010CA11052

PATIENT
  Age: 66 Year
  Sex: Male

DRUGS (5)
  1. SANDOSTATIN LAR DEPOT [Suspect]
     Active Substance: OCTREOTIDE ACETATE
     Dosage: 20 MG, QMO
     Route: 030
     Dates: start: 20101230, end: 20110711
  2. SANDOSTATIN LAR DEPOT [Suspect]
     Active Substance: OCTREOTIDE ACETATE
     Dosage: 40 MG, QMO
     Route: 030
     Dates: start: 20141010, end: 20141107
  3. SANDOSTATIN LAR DEPOT [Suspect]
     Active Substance: OCTREOTIDE ACETATE
     Dosage: 30 MG, QMO
     Route: 030
     Dates: start: 20141215
  4. SANDOSTATIN LAR DEPOT [Suspect]
     Active Substance: OCTREOTIDE ACETATE
     Dosage: 30 MG, QMO
     Route: 030
     Dates: start: 20110812, end: 20140912
  5. SANDOSTATIN LAR DEPOT [Suspect]
     Active Substance: OCTREOTIDE ACETATE
     Indication: CARCINOID TUMOUR
     Dosage: 10 MG, QMO
     Route: 030
     Dates: start: 20071226, end: 20101130

REACTIONS (24)
  - Back pain [Unknown]
  - Nausea [Recovered/Resolved]
  - Injection site swelling [Unknown]
  - Pain [Unknown]
  - Pain in extremity [Unknown]
  - Photopsia [Unknown]
  - Muscle spasms [Unknown]
  - Malignant neoplasm progression [Unknown]
  - Vision blurred [Unknown]
  - Loss of consciousness [Unknown]
  - Injection site mass [Recovering/Resolving]
  - Hyperhidrosis [Unknown]
  - Blood pressure increased [Unknown]
  - Body temperature increased [Unknown]
  - Flushing [Unknown]
  - Gait disturbance [Unknown]
  - Injection site pain [Unknown]
  - Flatulence [Unknown]
  - Asthenia [Recovered/Resolved]
  - Dizziness [Unknown]
  - Musculoskeletal pain [Unknown]
  - Malaise [Unknown]
  - Diarrhoea [Unknown]
  - Heart rate decreased [Unknown]

NARRATIVE: CASE EVENT DATE: 20071226
